FAERS Safety Report 6220511-6 (Version None)
Quarter: 2009Q2

REPORT INFORMATION
  Report Type: 
  Country: None (occurrence: None)
  Receive Date: 20090610
  Receipt Date: 20090603
  Transmission Date: 20091009
  Serious: Yes (Other)
  Sender: FDA-Public Use
  Company Number: US-BAXTER-2009BH009464

PATIENT
  Sex: Male

DRUGS (13)
  1. GAMMAGARD LIQUID [Suspect]
     Indication: MULTIPLE SCLEROSIS
     Route: 042
  2. GAMMAGARD LIQUID [Suspect]
     Indication: OFF LABEL USE
     Route: 042
  3. COPAXONE [Suspect]
     Indication: DRUG USE FOR UNKNOWN INDICATION
     Route: 065
  4. FLONASE [Concomitant]
     Indication: HYPERSENSITIVITY
  5. ALLEGRA [Concomitant]
     Indication: HYPERSENSITIVITY
     Route: 048
  6. ULTRAM [Concomitant]
     Indication: PAIN
     Route: 048
  7. BACLOFEN [Concomitant]
  8. TIZANIDINE HCL [Concomitant]
  9. AMANTADINE HCL [Concomitant]
  10. AMINOPYRINE [Concomitant]
  11. BENADRYL [Concomitant]
  12. TYLENOL (CAPLET) [Concomitant]
  13. VITAMIN D [Concomitant]

REACTIONS (3)
  - HEADACHE [None]
  - MENINGITIS ASEPTIC [None]
  - MUSCULOSKELETAL STIFFNESS [None]
